FAERS Safety Report 18920253 (Version 2)
Quarter: 2021Q1

REPORT INFORMATION
  Report Type: Spontaneous
  Country: CN (occurrence: CN)
  Receive Date: 20210222
  Receipt Date: 20210304
  Transmission Date: 20210420
  Serious: Yes (Other)
  Sender: FDA-Public Use
  Company Number: CN-FARMAPROD-202102-0206

PATIENT
  Sex: Male

DRUGS (4)
  1. TACROLIMUS. [Concomitant]
     Active Substance: TACROLIMUS
  2. OXERVATE [Suspect]
     Active Substance: CENEGERMIN-BKBJ
     Indication: NEUROTROPHIC KERATOPATHY
     Route: 047
     Dates: start: 20210203, end: 20210210
  3. FLUOROMETHOLONE. [Suspect]
     Active Substance: FLUOROMETHOLONE
     Indication: INTRAOCULAR PRESSURE TEST
     Dates: end: 20210205
  4. TRAVOPROST. [Concomitant]
     Active Substance: TRAVOPROST
     Indication: INTRAOCULAR PRESSURE TEST

REACTIONS (1)
  - Ocular hypertension [Recovered/Resolved]

NARRATIVE: CASE EVENT DATE: 2021
